FAERS Safety Report 5023178-8 (Version None)
Quarter: 2006Q2

REPORT INFORMATION
  Report Type: 
  Country: None (occurrence: None)
  Receive Date: 20060612
  Receipt Date: 20060427
  Transmission Date: 20061013
  Serious: Yes (Life-Threatening, Hospitalization)
  Sender: FDA-Public Use
  Company Number: FR-BRISTOL-MYERS SQUIBB COMPANY-13360680

PATIENT
  Age: 72 Year
  Sex: Female

DRUGS (6)
  1. COUMADIN [Suspect]
     Route: 048
     Dates: start: 19980615, end: 20060329
  2. AUGMENTIN '125' [Interacting]
     Indication: BRONCHOPNEUMOPATHY
     Dates: start: 20060321, end: 20060328
  3. OFLOCET [Interacting]
     Indication: BRONCHOPNEUMOPATHY
     Dates: start: 20060327, end: 20060329
  4. DEPAKENE [Concomitant]
  5. LEVOTHYROXIN [Concomitant]
     Indication: BRONCHOPNEUMOPATHY
  6. STEROGYL [Concomitant]

REACTIONS (6)
  - BLOOD SODIUM INCREASED [None]
  - BRONCHOPNEUMOPATHY [None]
  - DEHYDRATION [None]
  - DRUG INTERACTION [None]
  - INTERNATIONAL NORMALISED RATIO INCREASED [None]
  - PROTHROMBIN TIME SHORTENED [None]
